FAERS Safety Report 17174344 (Version 1)
Quarter: 2019Q4

REPORT INFORMATION
  Report Type: Spontaneous
  Country: US (occurrence: US)
  Receive Date: 20191126
  Receipt Date: 20191126
  Transmission Date: 20200122
  Serious: Yes (Hospitalization)
  Sender: FDA-Public Use
  Company Number: None

PATIENT
  Age: 15 Month
  Sex: Male

DRUGS (11)
  1. BUDESONIDE. [Concomitant]
     Active Substance: BUDESONIDE
  2. FUROSEMIDE. [Concomitant]
     Active Substance: FUROSEMIDE
  3. CYPROHEPTAD [Concomitant]
  4. EPANED [Concomitant]
     Active Substance: ENALAPRIL MALEATE
  5. ERYTHROMYCIN. [Concomitant]
     Active Substance: ERYTHROMYCIN
  6. OMEPRAZOLE. [Concomitant]
     Active Substance: OMEPRAZOLE
  7. AMOX/K CLAV [Concomitant]
     Active Substance: AMOXICILLIN\CLAVULANATE POTASSIUM
  8. RANITIDINE. [Concomitant]
     Active Substance: RANITIDINE
  9. SILDENAFIL 10MG/ML [Suspect]
     Active Substance: SILDENAFIL
     Indication: PULMONARY HYPERTENSION
     Route: 048
     Dates: start: 201907
  10. CEFDINIR. [Concomitant]
     Active Substance: CEFDINIR
  11. CEFPROZIL. [Concomitant]
     Active Substance: CEFPROZIL

REACTIONS (2)
  - Hospitalisation [None]
  - Tonsillectomy [None]

NARRATIVE: CASE EVENT DATE: 20191105
